FAERS Safety Report 8457813-9 (Version None)
Quarter: 2012Q2

REPORT INFORMATION
  Report Type: 
  Country: None (occurrence: None)
  Receive Date: 20120622
  Receipt Date: 20120612
  Transmission Date: 20120825
  Serious: Yes (Hospitalization)
  Sender: FDA-Public Use
  Company Number: US-BAYER-2012-014506

PATIENT
  Age: 33 Year
  Sex: Female
  Weight: 83.9 kg

DRUGS (11)
  1. HEMORRHOIDAL HC [Concomitant]
     Dosage: 25 MG, UNK
     Route: 054
     Dates: start: 20050628, end: 20051219
  2. GLUCOPHAGE XR [Concomitant]
     Dosage: UNK 500
     Dates: start: 20050930
  3. IBUPROFEN (ADVIL) [Concomitant]
  4. SARAFEM [Concomitant]
  5. YAZ [Suspect]
     Dosage: UNK
     Dates: start: 20030101, end: 20070101
  6. FLEXERIL [Concomitant]
  7. PREVACID [Concomitant]
     Indication: EPIGASTRIC DISCOMFORT
  8. OMEPRAZOLE [Concomitant]
     Indication: GASTRITIS
  9. NSAID'S [Concomitant]
     Dosage: UNK
     Dates: start: 19800101
  10. YASMIN [Suspect]
     Indication: MENSTRUAL DISORDER
     Dosage: UNK
     Dates: start: 20030101, end: 20070101
  11. ACETAMINOPHEN [Concomitant]

REACTIONS (5)
  - GALLBLADDER DISORDER [None]
  - BILIARY DYSKINESIA [None]
  - PAIN [None]
  - GENERAL PHYSICAL HEALTH DETERIORATION [None]
  - EMOTIONAL DISTRESS [None]
